FAERS Safety Report 17424208 (Version 2)
Quarter: 2020Q1

REPORT INFORMATION
  Report Type: Spontaneous
  Country: SK (occurrence: SK)
  Receive Date: 20200217
  Receipt Date: 20200305
  Transmission Date: 20200409
  Serious: Yes (Hospitalization, Other)
  Sender: FDA-Public Use
  Company Number: SK-EMD SERONO-9145467

PATIENT
  Age: 33 Year
  Sex: Female
  Weight: 99 kg

DRUGS (6)
  1. DORSIFLEX                          /00167701/ [Concomitant]
     Active Substance: MEPHENOXALONE
     Indication: PRODUCT USED FOR UNKNOWN INDICATION
  2. SPASMED                            /00376202/ [Concomitant]
     Active Substance: TROSPIUM CHLORIDE
     Indication: PRODUCT USED FOR UNKNOWN INDICATION
  3. PREGABALIN. [Concomitant]
     Active Substance: PREGABALIN
     Indication: PAIN
  4. ZALDIAR [Concomitant]
     Active Substance: ACETAMINOPHEN\TRAMADOL HYDROCHLORIDE
     Indication: PRODUCT USED FOR UNKNOWN INDICATION
     Dosage: DOSE: 37.5/325MG
  5. BELARA [Concomitant]
     Active Substance: CHLORMADINONE ACETATE\ETHINYL ESTRADIOL
     Indication: CONTRACEPTION
     Dosage: FOR 21 DAYS FROM THE BEGINNING OF THE CYCLE (MENSTRUAL CYCLE)
  6. MAVENCLAD [Suspect]
     Active Substance: CLADRIBINE
     Indication: RELAPSING-REMITTING MULTIPLE SCLEROSIS
     Dosage: FIRST CYCLE (MAVENCLAD 3.5MG FOR 99 KG, 10 DAYS PER YEAR).
     Route: 048
     Dates: start: 20190724, end: 20190728

REACTIONS (4)
  - Lymphocyte count decreased [Unknown]
  - Herpes zoster [Recovering/Resolving]
  - Multiple sclerosis [Unknown]
  - Tooth extraction [Unknown]

NARRATIVE: CASE EVENT DATE: 20190810
